FAERS Safety Report 8361078-6 (Version None)
Quarter: 2012Q2

REPORT INFORMATION
  Report Type: 
  Country: None (occurrence: None)
  Receive Date: 20120515
  Receipt Date: 20120507
  Transmission Date: 20120825
  Serious: Yes (Hospitalization)
  Sender: FDA-Public Use
  Company Number: US-BAYER-2012-000793

PATIENT
  Age: 27 Year
  Sex: Female
  Weight: 86.168 kg

DRUGS (8)
  1. ZOFRAN [Concomitant]
     Indication: VOMITING
  2. LASIX [Concomitant]
  3. ZOFRAN [Concomitant]
     Indication: NAUSEA
  4. YAZ [Suspect]
     Indication: ACNE
     Dosage: UNK
     Dates: start: 20010101, end: 20070101
  5. MS CONTIN [Concomitant]
     Indication: PAIN IN JAW
  6. YASMIN [Suspect]
     Indication: ACNE
     Dosage: UNK
     Dates: start: 20010101, end: 20070101
  7. OXYCONTIN [Concomitant]
  8. LYRICA [Concomitant]

REACTIONS (6)
  - PANCREATITIS [None]
  - CHOLECYSTITIS CHRONIC [None]
  - GALLBLADDER DISORDER [None]
  - ANHEDONIA [None]
  - PAIN [None]
  - ANXIETY [None]
